FAERS Safety Report 14002889 (Version 1)
Quarter: 2017Q3

REPORT INFORMATION
  Report Type: Spontaneous
  Country: US (occurrence: US)
  Receive Date: 20170922
  Receipt Date: 20170922
  Transmission Date: 20171128
  Serious: Yes (Hospitalization, Other)
  Sender: FDA-Public Use
  Company Number: US-CIPLA LTD.-2017US16947

PATIENT

DRUGS (13)
  1. LISINOPRIL. [Concomitant]
     Active Substance: LISINOPRIL
     Dosage: 2.5 MG, QD
     Route: 065
  2. OMEGA-3 FATTY ACIDS [Concomitant]
     Active Substance: OMEGA-3 FATTY ACIDS
     Dosage: 2 G, QD
     Route: 065
  3. ATORVASTATIN [Suspect]
     Active Substance: ATORVASTATIN
     Dosage: 40 MG, QD
     Route: 065
  4. DRONEDARONE [Interacting]
     Active Substance: DRONEDARONE
     Indication: ATRIAL FIBRILLATION
     Dosage: 400 MG, BID
     Route: 065
  5. PREGABALIN. [Concomitant]
     Active Substance: PREGABALIN
     Dosage: 100 MG, BID
     Route: 065
  6. NAPROXEN. [Concomitant]
     Active Substance: NAPROXEN
     Dosage: 500 MG, BID
     Route: 065
  7. CYCLOBENZAPRINE. [Interacting]
     Active Substance: CYCLOBENZAPRINE
     Dosage: 5 MG, BID
     Route: 065
  8. TAMSULOSIN [Interacting]
     Active Substance: TAMSULOSIN
     Dosage: 0.4 MG, QD
     Route: 065
  9. TADALAFIL [Interacting]
     Active Substance: TADALAFIL
     Dosage: 5 MG, PRN
     Route: 065
  10. GABAPENTIN. [Concomitant]
     Active Substance: GABAPENTIN
     Dosage: 300 MG, TID
     Route: 065
  11. OMEPRAZOLE. [Interacting]
     Active Substance: OMEPRAZOLE
     Dosage: 40 MG, QD
     Route: 065
  12. RIVAROXABAN [Interacting]
     Active Substance: RIVAROXABAN
     Indication: THROMBOSIS PROPHYLAXIS
     Dosage: 20 MG, QD
     Route: 065
  13. METOPROLOL. [Concomitant]
     Active Substance: METOPROLOL
     Dosage: 25 MG, QD
     Route: 065

REACTIONS (3)
  - Atrial fibrillation [Recovered/Resolved]
  - Cardiac tamponade [Recovered/Resolved]
  - Drug interaction [Unknown]
